FAERS Safety Report 5856082-3 (Version None)
Quarter: 2008Q3

REPORT INFORMATION
  Report Type: 
  Country: None (occurrence: None)
  Receive Date: 20080821
  Receipt Date: 20080821
  Transmission Date: 20090109
  Serious: No
  Sender: FDA-Public Use
  Company Number: None

PATIENT
  Age: 55 Year
  Sex: Male

DRUGS (1)
  1. ACETAMINOPHEN AND OXYCODONE HCL [Suspect]
     Indication: PAIN
     Dosage: 2 TAB OTHER PO
     Route: 048
     Dates: start: 20080307

REACTIONS (2)
  - SEDATION [None]
  - SOMNOLENCE [None]
